FAERS Safety Report 18773007 (Version 1)
Quarter: 2021Q1

REPORT INFORMATION
  Report Type: Report from Study
  Country: None (occurrence: US)
  Receive Date: 20210121
  Receipt Date: 20210121
  Transmission Date: 20210419
  Serious: Yes (Other)
  Sender: FDA-Public Use
  Company Number: US-ABBVIE-21K-163-3740159-00

PATIENT
  Age: 55 Year
  Sex: Female

DRUGS (2)
  1. HUMIRA [Suspect]
     Active Substance: ADALIMUMAB
     Dosage: CITRATE FREE
     Route: 058
     Dates: start: 20210102
  2. HUMIRA [Suspect]
     Active Substance: ADALIMUMAB
     Indication: RHEUMATOID ARTHRITIS
     Dosage: CITRATE FREE
     Route: 058
     Dates: end: 2020

REACTIONS (4)
  - Rotator cuff syndrome [Recovering/Resolving]
  - Tendon rupture [Recovering/Resolving]
  - Bunion operation [Recovering/Resolving]
  - Exostosis [Recovering/Resolving]

NARRATIVE: CASE EVENT DATE: 202012
